FAERS Safety Report 14591882 (Version 1)
Quarter: 2018Q1

REPORT INFORMATION
  Report Type: Spontaneous
  Country: US (occurrence: US)
  Receive Date: 20180302
  Receipt Date: 20180302
  Transmission Date: 20180509
  Serious: Yes (Other)
  Sender: FDA-Public Use
  Company Number: US-ASTELLAS-2018US010106

PATIENT
  Age: 44 Year
  Sex: Female
  Weight: 43 kg

DRUGS (1)
  1. MYRBETRIQ [Suspect]
     Active Substance: MIRABEGRON
     Indication: PRODUCT USED FOR UNKNOWN INDICATION
     Route: 065
     Dates: start: 201802

REACTIONS (3)
  - Neuralgia [Unknown]
  - Hypotonia [Unknown]
  - Sciatica [Unknown]

NARRATIVE: CASE EVENT DATE: 201802
